FAERS Safety Report 5280647-3 (Version None)
Quarter: 2007Q1

REPORT INFORMATION
  Report Type: 
  Country: None (occurrence: None)
  Receive Date: 20061221
  Receipt Date: 20060919
  Transmission Date: 20070707
  Serious: Yes (Death)
  Sender: FDA-Public Use
  Company Number: US-CVT-061921

PATIENT
  Age: 72 Year
  Sex: Male

DRUGS (15)
  1. RANEXA [Suspect]
     Indication: ANGINA PECTORIS
     Dosage: 500 MG, BID, ORAL
     Route: 048
     Dates: start: 20060718, end: 20060829
  2. ATENOLOL [Concomitant]
  3. ASPIRIN [Concomitant]
  4. PRAVACHOL [Concomitant]
  5. ZETIA [Concomitant]
  6. PROSCAR [Concomitant]
  7. FOLIC ACID [Concomitant]
  8. VITA-E (TOCOPHEROL) [Concomitant]
  9. ASCORBIC ACID [Concomitant]
  10. CYANOCOBALAMIN [Concomitant]
  11. MVI (VITAMINS NOS) [Concomitant]
  12. POTASSIUM CHLORIDE [Concomitant]
  13. NITROGLYCERIN [Concomitant]
  14. IMDUR [Concomitant]
  15. FISH OIL (FISH OIL) [Concomitant]

REACTIONS (1)
  - DEATH [None]
